FAERS Safety Report 6185121-8 (Version None)
Quarter: 2009Q2

REPORT INFORMATION
  Report Type: 
  Country: None (occurrence: None)
  Receive Date: 20090507
  Receipt Date: 20090428
  Transmission Date: 20091009
  Serious: Yes (Death)
  Sender: FDA-Public Use
  Company Number: TCI2009A01536

PATIENT
  Age: 9 Decade
  Sex: Female

DRUGS (3)
  1. LANSOPRAZOLE [Suspect]
     Indication: HAEMORRHAGE PROPHYLAXIS
     Dosage: 30 MG (30 MG, 1 D) INTRAVENOUS
     Route: 042
     Dates: start: 20090109, end: 20090418
  2. CARVEDILOL [Concomitant]
  3. SIGMART (NICORANDIL) [Concomitant]

REACTIONS (2)
  - EOSINOPHILIA [None]
  - SEPSIS [None]
